FAERS Safety Report 9631266 (Version 2)
Quarter: 2014Q1

REPORT INFORMATION
  Report Type: Spontaneous
  Country: GB (occurrence: None)
  Receive Date: 20131016
  Receipt Date: 20140130
  Transmission Date: 20141002
  Serious: Yes (Life-Threatening, Other)
  Sender: FDA-Public Use
  Company Number: FK201304532

PATIENT
  Age: 19 Year
  Sex: Female

DRUGS (14)
  1. ONDANSETRON [Suspect]
     Indication: PRODUCT USED FOR UNKNOWN INDICATION
     Dosage: 8 MG, THREE PER DAY, INTRAVENOUS (NOT OTHERWISE SPECIFIED)?
     Route: 042
  2. PARACETAMOL [Suspect]
     Indication: PRODUCT USED FOR UNKNOWN INDICATION
     Dosage: INTRAVENOUS (NOT OTHERWISE SPECIFIED)
     Route: 042
  3. ACICLOVIR (ACICLOVIR) [Suspect]
     Indication: PRODUCT USED FOR UNKNOWN INDICATION
  4. ALLOPURINOL [Suspect]
     Indication: PRODUCT USED FOR UNKNOWN INDICATION
     Route: 048
  5. CASPOFUNGIN [Suspect]
     Indication: PRODUCT USED FOR UNKNOWN INDICATION
     Dosage: 70 MG, ONCE PER DAY, INTRAVENOUS (NOT OTHERWISE SPECIFIED)?
     Route: 042
  6. CHLORPHENAMINE [Suspect]
     Indication: PRODUCT USED FOR UNKNOWN INDICATION
     Route: 042
  7. CICLOSPORIN (CICLOSPORIN) [Suspect]
     Indication: PRODUCT USED FOR UNKNOWN INDICATION
  8. ETOPOSIDE PHOSPHATE [Suspect]
     Dosage: 4650 MG, UNKNOWN, INTRAVENOUS (NOT OTHERWISE SPECIFIED)
     Route: 042
     Dates: start: 20070915, end: 20070915
  9. KETALAR [Suspect]
     Indication: PAIN
     Dosage: 6 ML, 1 HOUR, INTRAVENOUS (NOT OTHERWISE SPECIFIED)
     Route: 042
     Dates: start: 20070921, end: 20070928
  10. MORPHINE [Suspect]
     Indication: PRODUCT USED FOR UNKNOWN INDICATION
     Dosage: UNKNOWN, UNKNOWN, INTRAVENOUS (NOT OTHERWISE SPECIFIED)
     Route: 042
  11. NORETHISTERONE (NORETHISTERONE) [Suspect]
     Indication: PRODUCT USED FOR UNKNOWN INDICATION
     Route: 048
  12. OMEPRAZOLE [Suspect]
     Indication: PRODUCT USED FOR UNKNOWN INDICATION
  13. TAZOCIN (PIP/TAZO) [Suspect]
     Indication: PRODUCT USED FOR UNKNOWN INDICATION
     Dosage: 4.5 MG, THREE PER DAY, INTRAVENOUS (NOT OTHERWISE SPECIFIED)?
     Route: 042
  14. VORICONAZOLE [Suspect]
     Indication: PRODUCT USED FOR UNKNOWN INDICATION
     Route: 048

REACTIONS (3)
  - Dilatation intrahepatic duct acquired [None]
  - Hepatotoxicity [None]
  - Venoocclusive liver disease [None]
